FAERS Safety Report 24217747 (Version 1)
Quarter: 2024Q3

REPORT INFORMATION
  Report Type: Report from Study
  Country: US (occurrence: US)
  Receive Date: 20240816
  Receipt Date: 20240816
  Transmission Date: 20241017
  Serious: Yes (Other)
  Sender: pharmaAND
  Company Number: US-Pharmaand-2024000693

PATIENT
  Sex: Female

DRUGS (1)
  1. RUBRACA [Suspect]
     Active Substance: RUCAPARIB CAMSYLATE
     Indication: Rectal cancer
     Dosage: 300 MG EVERY 12 HOURS
     Route: 048
     Dates: start: 20240219

REACTIONS (16)
  - Nausea [Unknown]
  - Abdominal discomfort [Unknown]
  - Diarrhoea [Unknown]
  - Fatigue [Unknown]
  - Laboratory test abnormal [Unknown]
  - Oxygen therapy [Unknown]
  - Dyspnoea [Unknown]
  - Pain [Unknown]
  - Lung neoplasm [Unknown]
  - Pancreatic neoplasm [Unknown]
  - Neuropathy peripheral [Unknown]
  - Headache [Unknown]
  - Dry mouth [Unknown]
  - Blood iron decreased [Unknown]
  - Off label use [Recovered/Resolved]
  - Rectal cancer [Recovered/Resolved]
